FAERS Safety Report 16092764 (Version 2)
Quarter: 2019Q2

REPORT INFORMATION
  Report Type: Spontaneous
  Country: ES (occurrence: ES)
  Receive Date: 20190320
  Receipt Date: 20190405
  Transmission Date: 20190711
  Serious: Yes (Hospitalization)
  Sender: FDA-Public Use
  Company Number: ES-AUROBINDO-AUR-APL-2019-014000

PATIENT

DRUGS (23)
  1. LETROZOLE. [Suspect]
     Active Substance: LETROZOLE
     Dosage: 2 MG, QD
     Route: 048
     Dates: start: 20180815
  2. PALBOCICLIB [Suspect]
     Active Substance: PALBOCICLIB
     Dosage: 125 MILLIGRAM, ONCE A DAY, (FOR 5 DAYS)
     Route: 048
     Dates: start: 20180427, end: 20180501
  3. PALBOCICLIB [Suspect]
     Active Substance: PALBOCICLIB
     Dosage: 125 MILLIGRAM, ONCE A DAY, (FOR 21 DAYS)
     Route: 048
     Dates: start: 20180525, end: 20180614
  4. PALBOCICLIB [Suspect]
     Active Substance: PALBOCICLIB
     Dosage: 125 MILLIGRAM, ONCE A DAY, (FOR 21 DAYS)
     Route: 048
     Dates: start: 20180621, end: 20180711
  5. PERTUZUMAB. [Concomitant]
     Active Substance: PERTUZUMAB
     Dosage: UNK
     Route: 065
     Dates: start: 20180328
  6. TRASTUZUMAB. [Concomitant]
     Active Substance: TRASTUZUMAB
     Dosage: UNK
     Route: 065
     Dates: start: 20180511
  7. PALBOCICLIB [Suspect]
     Active Substance: PALBOCICLIB
     Dosage: 100 MG, QD (FOR 21 DAYS)
     Route: 048
     Dates: start: 20180726, end: 20180726
  8. PALBOCICLIB [Suspect]
     Active Substance: PALBOCICLIB
     Dosage: 125 MILLIGRAM, ONCE A DAY, (FOR 15 DAYS)
     Route: 048
     Dates: start: 20180503, end: 20180517
  9. PERTUZUMAB. [Concomitant]
     Active Substance: PERTUZUMAB
     Dosage: UNK
     Route: 065
     Dates: start: 20180511
  10. LETROZOLE. [Suspect]
     Active Substance: LETROZOLE
     Indication: BREAST CANCER METASTATIC
     Dosage: 2 MG, QD
     Route: 048
     Dates: start: 20180328
  11. LETROZOLE. [Suspect]
     Active Substance: LETROZOLE
     Dosage: 2 MG, QD (FOR 27 DAYS)
     Route: 048
     Dates: start: 20180525
  12. LETROZOLE. [Suspect]
     Active Substance: LETROZOLE
     Dosage: 2 MG, QD
     Route: 048
     Dates: start: 20180726
  13. PERTUZUMAB. [Concomitant]
     Active Substance: PERTUZUMAB
     Dosage: UNK
     Route: 065
     Dates: start: 20180612
  14. TRASTUZUMAB. [Concomitant]
     Active Substance: TRASTUZUMAB
     Dosage: 330 MG, Q3W
     Route: 042
     Dates: start: 20180802
  15. TRASTUZUMAB. [Concomitant]
     Active Substance: TRASTUZUMAB
     Dosage: UNK
     Route: 065
     Dates: start: 20180621
  16. TRASTUZUMAB. [Concomitant]
     Active Substance: TRASTUZUMAB
     Dosage: UNK
     Route: 065
     Dates: start: 20180328
  17. LETROZOLE. [Suspect]
     Active Substance: LETROZOLE
     Dosage: 2 MG, QD (FOR 35 DAYS)
     Route: 048
     Dates: start: 20180621
  18. PALBOCICLIB [Suspect]
     Active Substance: PALBOCICLIB
     Indication: BREAST CANCER METASTATIC
     Dosage: 125 MILLIGRAM, ONCE A DAY, (FOR 5 DAYS)
     Route: 048
     Dates: start: 20180328
  19. PALBOCICLIB [Suspect]
     Active Substance: PALBOCICLIB
     Dosage: 100 MG, QD (FOR 21 DAYS)
     Route: 048
     Dates: start: 20180823, end: 20180912
  20. PERTUZUMAB. [Concomitant]
     Active Substance: PERTUZUMAB
     Indication: PRODUCT USED FOR UNKNOWN INDICATION
     Dosage: 420 MG, Q3W
     Route: 042
     Dates: start: 20180601
  21. TRASTUZUMAB. [Concomitant]
     Active Substance: TRASTUZUMAB
     Indication: PRODUCT USED FOR UNKNOWN INDICATION
     Dosage: 330 MILLIGRAM, 3 WEEK
     Route: 042
     Dates: start: 20180601
  22. LETROZOLE. [Suspect]
     Active Substance: LETROZOLE
     Dosage: 2 MG, QD (FOR 28 DAYS)
     Route: 048
     Dates: start: 20180427
  23. PERTUZUMAB. [Concomitant]
     Active Substance: PERTUZUMAB
     Dosage: 420 MG, Q3W
     Route: 042
     Dates: start: 20180802

REACTIONS (4)
  - Pyrexia [Unknown]
  - Red blood cells urine positive [Unknown]
  - Urinary tract infection [Recovered/Resolved]
  - White blood cells urine positive [Unknown]

NARRATIVE: CASE EVENT DATE: 20180518
